FAERS Safety Report 10455855 (Version 1)
Quarter: 2014Q3

REPORT INFORMATION
  Report Type: Spontaneous
  Country: US (occurrence: None)
  Receive Date: 20140910
  Receipt Date: 20140910
  Transmission Date: 20150326
  Serious: Yes (Other)
  Sender: FDA-Public Use
  Company Number: 108797T

PATIENT
  Age: 55 Year
  Sex: Female

DRUGS (2)
  1. DIABETIC MEDICATION [Concomitant]
     Active Substance: UNSPECIFIED INGREDIENT
  2. CAMPHOR 4%, MENTHOL 10%, METHYL SAL 30%-EQUATE [Suspect]
     Active Substance: CAMPHOR (NATURAL)\MENTHOL\METHYL SALICYLATE
     Route: 061
     Dates: start: 20140809

REACTIONS (4)
  - Rash macular [None]
  - Exposure to toxic agent [None]
  - Rash pruritic [None]
  - Rash erythematous [None]

NARRATIVE: CASE EVENT DATE: 20140809
